FAERS Safety Report 25282183 (Version 1)
Quarter: 2025Q2

REPORT INFORMATION
  Report Type: Spontaneous
  Country: US (occurrence: US)
  Receive Date: 20250508
  Receipt Date: 20250508
  Transmission Date: 20250717
  Serious: Yes (Death)
  Sender: PHARMASCIENCE
  Company Number: US-Pharmascience Inc.-2176342

PATIENT
  Age: 58 Year
  Sex: Female

DRUGS (5)
  1. DECITABINE [Suspect]
     Active Substance: DECITABINE
     Indication: Chronic myelomonocytic leukaemia
  2. CYTARABINE [Suspect]
     Active Substance: CYTARABINE
  3. ETOPOSIDE [Suspect]
     Active Substance: ETOPOSIDE
  4. ALBUTEROL SULFATE [Suspect]
     Active Substance: ALBUTEROL SULFATE
  5. DAUNORUBICIN HYDROCHLORIDE [Suspect]
     Active Substance: DAUNORUBICIN HYDROCHLORIDE

REACTIONS (1)
  - Drug effect less than expected [Fatal]
